FAERS Safety Report 4881665-7 (Version None)
Quarter: 2006Q1

REPORT INFORMATION
  Report Type: 
  Country: None (occurrence: None)
  Receive Date: 20060112
  Receipt Date: 20060112
  Transmission Date: 20060701
  Serious: Yes (Hospitalization, Other)
  Sender: FDA-Public Use
  Company Number: None

PATIENT
  Sex: Female
  Weight: 81.8 kg

DRUGS (3)
  1. SANDOSTATIN [Suspect]
     Indication: NEOPLASM
     Dosage: SEE IMAGE
     Route: 030
     Dates: start: 20051130, end: 20051227
  2. FLUOROURACIL [Concomitant]
  3. MITOMYCIN [Concomitant]

REACTIONS (14)
  - BACILLUS INFECTION [None]
  - CORYNEBACTERIUM INFECTION [None]
  - DEHYDRATION [None]
  - DIARRHOEA [None]
  - DISCOMFORT [None]
  - ERYTHEMA [None]
  - GENITAL DISCHARGE [None]
  - GENITAL ERYTHEMA [None]
  - NEUTROPENIA [None]
  - PLATELET COUNT DECREASED [None]
  - PYREXIA [None]
  - SKIN EXFOLIATION [None]
  - VULVAL DISORDER [None]
  - WHITE BLOOD CELL COUNT DECREASED [None]
